FAERS Safety Report 9470318 (Version 1)
Quarter: 2013Q3

REPORT INFORMATION
  Report Type: Spontaneous
  Country: US (occurrence: US)
  Receive Date: 20130822
  Receipt Date: 20130822
  Transmission Date: 20140515
  Serious: No
  Sender: FDA-Public Use
  Company Number: US-SANOFI-AVENTIS-2012SA078215

PATIENT
  Age: 73 Year
  Sex: Female

DRUGS (10)
  1. MULTAQ [Suspect]
     Indication: ATRIAL FLUTTER
     Dosage: 1/2 DOSE (200 MG BID)
     Route: 048
     Dates: start: 20121024
  2. CENTRUM SILVER [Concomitant]
  3. CALCIUM [Concomitant]
  4. FISH OIL [Concomitant]
  5. HERBAL PREPARATION [Concomitant]
  6. GINKGO BILOBA [Concomitant]
  7. NEXIUM [Concomitant]
  8. CELEBREX [Concomitant]
  9. AZOPT [Concomitant]
  10. OPHTHALMOLOGICALS [Concomitant]

REACTIONS (2)
  - Palpitations [Recovered/Resolved]
  - Wrong technique in drug usage process [Unknown]
